FAERS Safety Report 6131427-8 (Version None)
Quarter: 2009Q1

REPORT INFORMATION
  Report Type: 
  Country: None (occurrence: None)
  Receive Date: 20090325
  Receipt Date: 20080617
  Transmission Date: 20090719
  Serious: No
  Sender: FDA-Public Use
  Company Number: US-BRISTOL-MYERS SQUIBB COMPANY-14231450

PATIENT
  Sex: Male

DRUGS (4)
  1. ERBITUX [Suspect]
  2. AVAPRO [Concomitant]
  3. PRILOSEC [Concomitant]
  4. PERCOCET [Concomitant]

REACTIONS (5)
  - BLOOD PRESSURE DECREASED [None]
  - CHEST DISCOMFORT [None]
  - CHILLS [None]
  - FLUSHING [None]
  - PRURITUS [None]
